FAERS Safety Report 25811535 (Version 1)
Quarter: 2025Q3

REPORT INFORMATION
  Report Type: Spontaneous
  Country: US (occurrence: US)
  Receive Date: 20250917
  Receipt Date: 20250917
  Transmission Date: 20251020
  Serious: No
  Sender: Onesource Specialty Pharma
  Company Number: US-STRIDES ARCOLAB LIMITED-2025SP006902

PATIENT
  Age: 43 Year
  Sex: Female
  Weight: 83.9 kg

DRUGS (1)
  1. BENZONATATE [Suspect]
     Active Substance: BENZONATATE
     Indication: Bronchitis
     Route: 048
     Dates: start: 20250528, end: 20250529

REACTIONS (4)
  - Aphonia [None]
  - Cough [None]
  - Vomiting [None]
  - Off label use [Unknown]

NARRATIVE: CASE EVENT DATE: 20250528
